FAERS Safety Report 24968611 (Version 2)
Quarter: 2025Q1

REPORT INFORMATION
  Report Type: Report from Study
  Country: LK (occurrence: LK)
  Receive Date: 20250214
  Receipt Date: 20250228
  Transmission Date: 20250409
  Serious: Yes (Other)
  Sender: RANBAXY
  Company Number: LK-SUN PHARMACEUTICAL INDUSTRIES LTD-2025RR-494114

PATIENT
  Age: 22 Year
  Sex: Female

DRUGS (1)
  1. VENLAFAXINE [Suspect]
     Active Substance: VENLAFAXINE HYDROCHLORIDE
     Indication: Product used for unknown indication
     Route: 065

REACTIONS (2)
  - Overdose [Unknown]
  - Sinus tachycardia [Unknown]
